FAERS Safety Report 8191942-2 (Version None)
Quarter: 2012Q1

REPORT INFORMATION
  Report Type: 
  Country: None (occurrence: None)
  Receive Date: 20120307
  Receipt Date: 20120301
  Transmission Date: 20120608
  Serious: Yes (Other)
  Sender: FDA-Public Use
  Company Number: PHHY2012JP018547

PATIENT
  Age: 8 Month
  Sex: Male

DRUGS (2)
  1. TEGRETOL [Suspect]
     Dosage: 20 MG/KG, UNK
     Route: 048
  2. TEGRETOL [Suspect]
     Dosage: UNK UKN, UNK
     Route: 048

REACTIONS (4)
  - SOMNOLENCE [None]
  - DELIRIUM [None]
  - VOMITING [None]
  - DRUG LEVEL DECREASED [None]
